FAERS Safety Report 22618922 (Version 1)
Quarter: 2023Q2

REPORT INFORMATION
  Report Type: Spontaneous
  Country: CN (occurrence: CN)
  Receive Date: 20230620
  Receipt Date: 20230620
  Transmission Date: 20230722
  Serious: Yes (Other)
  Sender: FDA-Public Use
  Company Number: None

PATIENT
  Age: 63 Year
  Sex: Female
  Weight: 63.5 kg

DRUGS (6)
  1. CYCLOPHOSPHAMIDE [Suspect]
     Active Substance: CYCLOPHOSPHAMIDE
     Indication: Breast cancer female
     Dosage: 0.99 G, QD, D1,  (IMPORTED), DILUTED WITH SODIUM CHLORIDE 100 ML, 4TH COURSE OF ADJUVANT CHEMOTHERAP
     Route: 041
     Dates: start: 20230606, end: 20230606
  2. CYCLOPHOSPHAMIDE [Suspect]
     Active Substance: CYCLOPHOSPHAMIDE
     Indication: Chemotherapy
  3. EPIRUBICIN [Suspect]
     Active Substance: EPIRUBICIN
     Indication: Breast cancer female
     Dosage: 148 MG, QD, D1, DILUTED WITH SODIUM CHLORIDE 100 ML,4TH COURSE OF ADJUVANT CHEMOTHERAPY
     Route: 041
     Dates: start: 20230606, end: 20230606
  4. EPIRUBICIN [Suspect]
     Active Substance: EPIRUBICIN
     Indication: Chemotherapy
  5. SODIUM CHLORIDE [Suspect]
     Active Substance: SODIUM CHLORIDE
     Indication: Medication dilution
     Dosage: 100 ML, QD, USED TO DILUTE CYCLOPHOSPHAMIDE 0.99 G, 4TH COURSE OF ADJUVANT CHEMOTHERAPY
     Route: 041
     Dates: start: 20230606, end: 20230606
  6. SODIUM CHLORIDE [Suspect]
     Active Substance: SODIUM CHLORIDE
     Dosage: 100 ML, QD, USED TO DILUTE EPIRUBICIN HYDROCHLORIDE 148 MG, 4TH COURSE OF ADJUVANT CHEMOTHERAPY
     Route: 041
     Dates: start: 20230606, end: 20230606

REACTIONS (5)
  - Nausea [Recovering/Resolving]
  - Vomiting [Recovering/Resolving]
  - Flushing [Recovering/Resolving]
  - Gastrointestinal disorder [Recovering/Resolving]
  - Hypersensitivity [Recovering/Resolving]

NARRATIVE: CASE EVENT DATE: 20230607
